FAERS Safety Report 25995657 (Version 4)
Quarter: 2025Q4

REPORT INFORMATION
  Report Type: Spontaneous
  Country: US (occurrence: US)
  Receive Date: 20251104
  Receipt Date: 20251209
  Transmission Date: 20260117
  Serious: No
  Sender: MYLAN
  Company Number: US-MYLANLABS-2025M1089852

PATIENT
  Age: 78 Year
  Sex: Female

DRUGS (2)
  1. BREYNA [Suspect]
     Active Substance: BUDESONIDE\FORMOTEROL FUMARATE
     Indication: Asthma
     Dosage: 320 PER 9 MICROGRAM, BID ( 2 PUFFS IN THE MORNING AND 2 PUFFS BEFORE BEDTIME)
     Dates: start: 20251007
  2. BREYNA [Suspect]
     Active Substance: BUDESONIDE\FORMOTEROL FUMARATE
     Dosage: 320 PER 9 MICROGRAM, BID ( 2 PUFFS IN THE MORNING AND 2 PUFFS BEFORE BEDTIME)
     Dates: start: 20251007

REACTIONS (4)
  - Wheezing [Unknown]
  - Wrong technique in product usage process [Unknown]
  - Device delivery system issue [Unknown]
  - Device defective [Unknown]

NARRATIVE: CASE EVENT DATE: 20251015
